FAERS Safety Report 7563131-3 (Version None)
Quarter: 2011Q2

REPORT INFORMATION
  Report Type: 
  Country: None (occurrence: None)
  Receive Date: 20110622
  Receipt Date: 20110615
  Transmission Date: 20111010
  Serious: Yes (Death, Hospitalization, Disabling)
  Sender: FDA-Public Use
  Company Number: JP-JNJFOC-20091005904

PATIENT
  Sex: Female
  Weight: 52 kg

DRUGS (8)
  1. NAUZELIN [Concomitant]
     Indication: NAUSEA
     Route: 048
     Dates: start: 20090522, end: 20090807
  2. DOXORUBICIN HCL [Suspect]
     Route: 042
     Dates: start: 20090612, end: 20090612
  3. ZOFRAN [Concomitant]
     Indication: NAUSEA
     Route: 048
     Dates: start: 20090529, end: 20090807
  4. DOXORUBICIN HCL [Suspect]
     Indication: OVARIAN CANCER RECURRENT
     Route: 042
     Dates: start: 20090515, end: 20090515
  5. DOXORUBICIN HCL [Suspect]
     Route: 042
     Dates: start: 20090710, end: 20090710
  6. PELTAZON [Concomitant]
     Route: 048
     Dates: start: 20090522, end: 20090807
  7. RABEPRAZOLE SODIUM [Concomitant]
     Indication: NAUSEA
     Route: 048
     Dates: start: 20090522, end: 20090807
  8. DECADRON [Concomitant]
     Indication: NAUSEA
     Route: 048
     Dates: start: 20090522, end: 20090807

REACTIONS (3)
  - OVARIAN CANCER RECURRENT [None]
  - NAUSEA [None]
  - ASCITES [None]
